FAERS Safety Report 10184919 (Version 2)
Quarter: 2014Q2

REPORT INFORMATION
  Report Type: Spontaneous
  Country: US (occurrence: US)
  Receive Date: 20140521
  Receipt Date: 20140612
  Transmission Date: 20141212
  Serious: Yes (Hospitalization)
  Sender: FDA-Public Use
  Company Number: US-ELI_LILLY_AND_COMPANY-US201405003451

PATIENT
  Age: 45 Year
  Sex: Female

DRUGS (2)
  1. HUMALOG LISPRO [Suspect]
     Indication: PRODUCT USED FOR UNKNOWN INDICATION
     Route: 058
  2. NOVOLOG [Suspect]
     Indication: PRODUCT USED FOR UNKNOWN INDICATION
     Route: 058

REACTIONS (3)
  - Urinary tract infection [Unknown]
  - Infusion site vesicles [Unknown]
  - Infusion site pruritus [Unknown]
